FAERS Safety Report 19288714 (Version 1)
Quarter: 2021Q2

REPORT INFORMATION
  Report Type: Spontaneous
  Country: CZ (occurrence: CZ)
  Receive Date: 20210522
  Receipt Date: 20210522
  Transmission Date: 20210717
  Serious: Yes (Hospitalization, Other)
  Sender: FDA-Public Use
  Company Number: CZ-ACCORD-225923

PATIENT
  Age: 57 Year
  Sex: Female

DRUGS (2)
  1. PEMETREXED. [Suspect]
     Active Substance: PEMETREXED
     Indication: LUNG ADENOCARCINOMA
     Dates: start: 202005
  2. CISPLATIN. [Suspect]
     Active Substance: CISPLATIN
     Indication: LUNG ADENOCARCINOMA
     Dates: start: 202005

REACTIONS (11)
  - Respiratory failure [Recovered/Resolved]
  - Headache [Recovered/Resolved]
  - Cognitive disorder [Recovered/Resolved]
  - Vomiting [Recovered/Resolved]
  - Memory impairment [Recovered/Resolved]
  - Behaviour disorder [Recovered/Resolved]
  - Haemoptysis [Recovered/Resolved]
  - Anaemia [Recovered/Resolved]
  - Renal impairment [Recovered/Resolved]
  - Visual impairment [Recovered/Resolved]
  - Hypoacusis [Recovered/Resolved]

NARRATIVE: CASE EVENT DATE: 202005
